FAERS Safety Report 7308041-1 (Version None)
Quarter: 2011Q1

REPORT INFORMATION
  Report Type: 
  Country: None (occurrence: None)
  Receive Date: 20110223
  Receipt Date: 20100908
  Transmission Date: 20110831
  Serious: Yes (Hospitalization, Other)
  Sender: FDA-Public Use
  Company Number: US-BAYER-201020937NA

PATIENT
  Sex: Female
  Weight: 102.4 kg

DRUGS (6)
  1. YASMIN [Suspect]
     Indication: CONTRACEPTION
     Dosage: UNK
     Dates: start: 20010930, end: 20051201
  2. OCELLA [Suspect]
     Indication: CONTRACEPTION
     Dosage: UNK
     Dates: start: 20080709, end: 20100101
  3. ACIPHEX [Concomitant]
     Dosage: 20 MG, UNK
     Route: 048
     Dates: start: 20071001, end: 20080601
  4. YASMIN [Suspect]
     Indication: OVARIAN CYST
     Dosage: UNK
     Dates: start: 20060306, end: 20080801
  5. OCELLA [Suspect]
     Indication: OVARIAN CYST
  6. OXYCODONE HCL AND ACETAMINOPHEN [Concomitant]

REACTIONS (5)
  - CHOLECYSTITIS CHRONIC [None]
  - CHOLELITHIASIS [None]
  - LIVER FUNCTION TEST ABNORMAL [None]
  - CHOLECYSTITIS ACUTE [None]
  - ABDOMINAL PAIN UPPER [None]
